FAERS Safety Report 18415214 (Version 1)
Quarter: 2020Q4

REPORT INFORMATION
  Report Type: Spontaneous
  Country: ES (occurrence: ES)
  Receive Date: 20201022
  Receipt Date: 20201022
  Transmission Date: 20210114
  Serious: Yes (Other)
  Sender: FDA-Public Use
  Company Number: ES-TEVA-2020-ES-1839872

PATIENT
  Age: 56 Year
  Sex: Female
  Weight: 111 kg

DRUGS (2)
  1. GABAPENTINA AUROVITAS 300 MG CAPSULAS DURAS EFG, 90 CAPSULAS [Concomitant]
  2. PACLITAXEL. [Suspect]
     Active Substance: PACLITAXEL
     Indication: BREAST CANCER
     Dosage: 80 MG PER SQUARE METER WEEKLY
     Route: 041
     Dates: start: 20200916, end: 20200916

REACTIONS (4)
  - Type I hypersensitivity [Recovered/Resolved]
  - Rash [Recovered/Resolved]
  - Chest discomfort [Recovered/Resolved]
  - Hypotension [Recovered/Resolved]

NARRATIVE: CASE EVENT DATE: 20200916
